FAERS Safety Report 6643586-9 (Version None)
Quarter: 2010Q1

REPORT INFORMATION
  Report Type: 
  Country: None (occurrence: None)
  Receive Date: 20100320
  Receipt Date: 20100309
  Transmission Date: 20100710
  Serious: No
  Sender: FDA-Public Use
  Company Number: US-JNJFOC-20100302966

PATIENT
  Sex: Male
  Weight: 63.5 kg

DRUGS (2)
  1. FENTANYL-100 [Suspect]
     Indication: PAIN MANAGEMENT
     Route: 062
  2. MANY OTHER UNSPECIFIED MEDICATIONS [Concomitant]
     Route: 065

REACTIONS (2)
  - DRUG EFFECT INCREASED [None]
  - DRUG PRESCRIBING ERROR [None]
